FAERS Safety Report 18784568 (Version 1)
Quarter: 2021Q1

REPORT INFORMATION
  Report Type: Other
  Country: CA (occurrence: CA)
  Receive Date: 20210126
  Receipt Date: 20210126
  Transmission Date: 20210419
  Serious: Yes (Other)
  Sender: FDA-Public Use
  Company Number: CA-CELLTRION INC.-2021CA000617

PATIENT

DRUGS (1)
  1. RITUXIMAB (UNKNOWN) [Suspect]
     Active Substance: RITUXIMAB
     Indication: ASTHMA
     Dosage: 700 MILLIGRAM, 1 EVERY 1 WEE
     Route: 042

REACTIONS (3)
  - Intentional product use issue [Unknown]
  - Skin ulcer [Unknown]
  - Off label use [Unknown]
